FAERS Safety Report 4489571-7 (Version None)
Quarter: 2004Q4

REPORT INFORMATION
  Report Type: 
  Country: None (occurrence: None)
  Receive Date: 20041026
  Receipt Date: 20041001
  Transmission Date: 20050328
  Serious: Yes (Hospitalization, Other)
  Sender: FDA-Public Use
  Company Number: RB-959-2004

PATIENT
  Age: 70 Year
  Sex: Male

DRUGS (11)
  1. BUPRENORPHINE HCL [Suspect]
     Indication: PAIN
     Dosage: 0.4 MG
     Route: 054
     Dates: start: 20030702, end: 20030703
  2. BUPRENORPHINE HCL [Suspect]
     Indication: SPINAL COMPRESSION FRACTURE
     Dosage: 0.4 MG
     Route: 054
     Dates: start: 20030702, end: 20030703
  3. DEXAMETHASONE [Concomitant]
  4. URSODEOXYCHOLIC ACID [Concomitant]
  5. KANAMYCIN SULFATE [Concomitant]
  6. LACTULOSE [Concomitant]
  7. SPIRONOLACTONE [Concomitant]
  8. TEPRENONE [Concomitant]
  9. RANITIDINE [Concomitant]
  10. OMEPRAZOLE [Concomitant]
  11. SODIUM ALGINATE [Concomitant]

REACTIONS (5)
  - COMA [None]
  - HEPATIC ENCEPHALOPATHY [None]
  - HEPATIC FAILURE [None]
  - OVERDOSE [None]
  - SOMNOLENCE [None]
